FAERS Safety Report 7021636-8 (Version None)
Quarter: 2010Q3

REPORT INFORMATION
  Report Type: 
  Country: None (occurrence: None)
  Receive Date: 20100929
  Receipt Date: 20100920
  Transmission Date: 20110219
  Serious: Yes (Other)
  Sender: FDA-Public Use
  Company Number: US-ABBOTT-10P-163-0672601-00

PATIENT
  Age: 47 Year
  Sex: Male

DRUGS (13)
  1. HUMIRA [Suspect]
     Indication: CROHN'S DISEASE
     Dates: start: 20100826, end: 20100826
  2. HUMIRA [Suspect]
  3. HUMIRA [Suspect]
  4. NOVOLOG [Concomitant]
     Indication: DIABETES MELLITUS
  5. CHOLESTYRAMINE [Concomitant]
     Indication: DIARRHOEA
  6. POTASSIUM [Concomitant]
     Indication: ELECTROLYTE SUBSTITUTION THERAPY
  7. PREDNISONE [Concomitant]
     Indication: CROHN'S DISEASE
  8. LORTAB [Concomitant]
     Indication: PAIN
  9. FOLBIC [Concomitant]
     Indication: THYROID DISORDER
  10. VITAMIN B-12 [Concomitant]
     Indication: PRODUCT USED FOR UNKNOWN INDICATION
  11. PROTONIX [Concomitant]
     Indication: GASTROOESOPHAGEAL REFLUX DISEASE
  12. ZOLPIDEM [Concomitant]
     Indication: INSOMNIA
  13. PENTASA [Concomitant]
     Indication: PRODUCT USED FOR UNKNOWN INDICATION

REACTIONS (2)
  - CROHN'S DISEASE [None]
  - DIARRHOEA [None]
